FAERS Safety Report 4954486-4 (Version None)
Quarter: 2006Q1

REPORT INFORMATION
  Report Type: 
  Country: None (occurrence: None)
  Receive Date: 20060327
  Receipt Date: 20060314
  Transmission Date: 20060701
  Serious: Yes (Other)
  Sender: FDA-Public Use
  Company Number: US-NOVOPROD-251566

PATIENT
  Age: 10 Year
  Sex: Male
  Weight: 32 kg

DRUGS (1)
  1. NORDITROPIN NORDIFLEX [Suspect]
     Indication: GROWTH RETARDATION
     Dosage: 1.37 MG, QD
     Route: 058
     Dates: start: 20051201, end: 20060308

REACTIONS (1)
  - ACUTE LYMPHOCYTIC LEUKAEMIA RECURRENT [None]
